FAERS Safety Report 22653590 (Version 1)
Quarter: 2023Q2

REPORT INFORMATION
  Report Type: Other
  Country: CA (occurrence: CA)
  Receive Date: 20230629
  Receipt Date: 20230629
  Transmission Date: 20230721
  Serious: Yes (Death, Other)
  Sender: FDA-Public Use
  Company Number: CA-APOTEX-2023AP009458

PATIENT
  Sex: Male
  Weight: 72 kg

DRUGS (3)
  1. GEMCITABINE [Suspect]
     Active Substance: GEMCITABINE
     Indication: Product used for unknown indication
     Dosage: 1869 MILLIGRAM
     Route: 042
  2. CISPLATIN [Suspect]
     Active Substance: CISPLATIN
     Indication: Product used for unknown indication
     Dosage: 23 MILLIGRAM
     Route: 042
  3. IMFINZI [Suspect]
     Active Substance: DURVALUMAB
     Indication: Biliary neoplasm
     Dosage: 1500 MILLIGRAM, Q.3W
     Route: 042

REACTIONS (3)
  - Clostridium difficile infection [Fatal]
  - Sepsis [Fatal]
  - Decreased immune responsiveness [Fatal]
